FAERS Safety Report 19006678 (Version 4)
Quarter: 2021Q2

REPORT INFORMATION
  Report Type: Report from Study
  Country: US (occurrence: US)
  Receive Date: 20210315
  Receipt Date: 20210507
  Transmission Date: 20210717
  Serious: Yes (Other)
  Sender: FDA-Public Use
  Company Number: US-BRISTOL-MYERS SQUIBB COMPANY-BMS-2021-022600

PATIENT
  Age: 62 Year
  Sex: Male

DRUGS (3)
  1. NIVOLUMAB [Suspect]
     Active Substance: NIVOLUMAB
     Indication: RENAL CELL CARCINOMA
     Dosage: UNK, Q4WK
     Route: 042
  2. CABOZANTINIB [Suspect]
     Active Substance: CABOZANTINIB
     Indication: RENAL CELL CARCINOMA
     Route: 048
  3. VOTRIENT [Suspect]
     Active Substance: PAZOPANIB HYDROCHLORIDE
     Indication: PRODUCT USED FOR UNKNOWN INDICATION
     Dosage: UNK
     Route: 065

REACTIONS (9)
  - Constipation [Unknown]
  - Blood pressure abnormal [Unknown]
  - Urticaria [Not Recovered/Not Resolved]
  - Spinal pain [Recovering/Resolving]
  - Skin exfoliation [Not Recovered/Not Resolved]
  - Fluid retention [Unknown]
  - Ascites [Unknown]
  - Peritoneal neoplasm [Unknown]
  - Dry skin [Unknown]
